FAERS Safety Report 6547184-7 (Version None)
Quarter: 2010Q1

REPORT INFORMATION
  Report Type: 
  Country: None (occurrence: None)
  Receive Date: 20100122
  Receipt Date: 20100114
  Transmission Date: 20100710
  Serious: Yes (Life-Threatening, Hospitalization)
  Sender: FDA-Public Use
  Company Number: GXKR2010FR00947

PATIENT
  Age: 68 Year
  Sex: Female

DRUGS (2)
  1. RIFAMPICIN [Suspect]
     Indication: ARTHRITIS INFECTIVE
     Route: 065
  2. CUBICIN [Suspect]
     Indication: ARTHRITIS INFECTIVE
     Dosage: UNK
     Route: 065
     Dates: end: 20100105

REACTIONS (6)
  - ACUTE RESPIRATORY DISTRESS SYNDROME [None]
  - ENDOTRACHEAL INTUBATION [None]
  - EOSINOPHIL COUNT INCREASED [None]
  - EOSINOPHILIC PNEUMONIA [None]
  - LOWER RESPIRATORY TRACT INFLAMMATION [None]
  - MECHANICAL VENTILATION [None]
